FAERS Safety Report 13633859 (Version 1)
Quarter: 2017Q2

REPORT INFORMATION
  Report Type: Spontaneous
  Country: US (occurrence: US)
  Receive Date: 20170531
  Receipt Date: 20170531
  Transmission Date: 20170830
  Serious: No
  Sender: FDA-Public Use
  Company Number: US-ASTELLAS-1584614

PATIENT
  Sex: Female

DRUGS (8)
  1. TYLENOL EXTRA STRENGTH [Concomitant]
     Active Substance: ACETAMINOPHEN
  2. SIMVASTATIN. [Concomitant]
     Active Substance: SIMVASTATIN
  3. METOPROLOL TARTRATE. [Concomitant]
     Active Substance: METOPROLOL TARTRATE
     Dosage: UNKNOWN
     Route: 065
  4. ALPRAZOLAM. [Concomitant]
     Active Substance: ALPRAZOLAM
     Dosage: UNKNOWN
     Route: 065
  5. PAROXETINE HCL [Concomitant]
     Active Substance: PAROXETINE HYDROCHLORIDE
  6. TARCEVA [Suspect]
     Active Substance: ERLOTINIB HYDROCHLORIDE
     Indication: LUNG NEOPLASM MALIGNANT
     Route: 048
     Dates: start: 20150504
  7. GAS-X [Concomitant]
     Active Substance: DIMETHICONE
     Dosage: UNKNOWN
     Route: 065
  8. PRILOSEC [Concomitant]
     Active Substance: OMEPRAZOLE MAGNESIUM

REACTIONS (6)
  - Rash [Not Recovered/Not Resolved]
  - Ocular hyperaemia [Unknown]
  - Eye pruritus [Unknown]
  - Rash generalised [Unknown]
  - Eye irritation [Unknown]
  - Decreased appetite [Unknown]
